FAERS Safety Report 22352413 (Version 1)
Quarter: 2023Q2

REPORT INFORMATION
  Report Type: Spontaneous
  Country: PT (occurrence: PT)
  Receive Date: 20230522
  Receipt Date: 20230522
  Transmission Date: 20230722
  Serious: Yes (Hospitalization, Other)
  Sender: FDA-Public Use
  Company Number: PT-GILEAD-2023-0628698

PATIENT
  Age: 44 Year
  Sex: Male
  Weight: 75 kg

DRUGS (4)
  1. EMTRICITABINE [Suspect]
     Active Substance: EMTRICITABINE
     Indication: Prophylaxis against HIV infection
     Dosage: UNK
     Route: 065
     Dates: start: 202001, end: 202012
  2. EMTRICITABINE [Suspect]
     Active Substance: EMTRICITABINE
     Dosage: UNK
     Route: 065
     Dates: start: 202106, end: 202112
  3. EMTRICITABINE [Suspect]
     Active Substance: EMTRICITABINE
     Dosage: UNK, DAILY REGIMEN
     Route: 065
     Dates: start: 202206, end: 202208
  4. EMTRICITABINE [Suspect]
     Active Substance: EMTRICITABINE
     Dosage: UNK, ON-DEMAND REGIMEN
     Route: 065
     Dates: start: 202209

REACTIONS (6)
  - Renal impairment [Unknown]
  - COVID-19 [Unknown]
  - Pericarditis [Unknown]
  - HIV infection [Unknown]
  - Off label use [Unknown]
  - Drug ineffective [Recovered/Resolved]

NARRATIVE: CASE EVENT DATE: 20201201
